FAERS Safety Report 15683812 (Version 3)
Quarter: 2018Q4

REPORT INFORMATION
  Report Type: Spontaneous
  Country: US (occurrence: US)
  Receive Date: 20181204
  Receipt Date: 20181207
  Transmission Date: 20190205
  Serious: Yes (Other)
  Sender: FDA-Public Use
  Company Number: US-ROCHE-2224669

PATIENT
  Age: 74 Year
  Sex: Female

DRUGS (1)
  1. XOLAIR [Suspect]
     Active Substance: OMALIZUMAB
     Indication: ASTHMA
     Route: 058

REACTIONS (3)
  - Viral infection [Recovered/Resolved]
  - Angioedema [Unknown]
  - Anxiety [Unknown]

NARRATIVE: CASE EVENT DATE: 20181126
